FAERS Safety Report 8151032-1 (Version None)
Quarter: 2012Q1

REPORT INFORMATION
  Report Type: 
  Country: None (occurrence: None)
  Receive Date: 20120220
  Receipt Date: 20120214
  Transmission Date: 20120608
  Serious: Yes (Hospitalization)
  Sender: FDA-Public Use
  Company Number: US-GILEAD-2012-0050558

PATIENT
  Age: 60 Year
  Sex: Male

DRUGS (3)
  1. ADCIRCA [Concomitant]
  2. FLOLAN [Concomitant]
  3. LETAIRIS [Suspect]
     Indication: PRODUCT USED FOR UNKNOWN INDICATION
     Dosage: 5 MG, UNK
     Route: 048
     Dates: start: 20111229

REACTIONS (1)
  - CARDIAC FAILURE CONGESTIVE [None]
